FAERS Safety Report 4381734-4 (Version None)
Quarter: 2004Q2

REPORT INFORMATION
  Report Type: 
  Country: None (occurrence: None)
  Receive Date: 20040615
  Receipt Date: 20040608
  Transmission Date: 20050107
  Serious: Yes (Hospitalization)
  Sender: FDA-Public Use
  Company Number: STA-AE-04-MTX-214

PATIENT
  Age: 74 Year
  Sex: Female

DRUGS (7)
  1. RHEUMATREX [Suspect]
     Indication: RHEUMATOID ARTHRITIS
     Dosage: 6 MG 1X PER 1 WK, ORAL
     Route: 048
     Dates: start: 20040115, end: 20040506
  2. PREDNISOLONE [Concomitant]
  3. CLINORIL [Concomitant]
  4. CYTOTEC [Concomitant]
  5. DICLOFENAC (DICLOFENAC) [Concomitant]
  6. ALENDRONATE SODIUM [Concomitant]
  7. FOLIAMIN (FOLIC ACID) [Concomitant]

REACTIONS (2)
  - INTERSTITIAL LUNG DISEASE [None]
  - PNEUMOCYSTIS CARINII PNEUMONIA [None]
